FAERS Safety Report 4380758-0 (Version None)
Quarter: 2004Q2

REPORT INFORMATION
  Report Type: 
  Country: None (occurrence: None)
  Receive Date: 20040616
  Receipt Date: 20040601
  Transmission Date: 20050107
  Serious: Yes (Death)
  Sender: FDA-Public Use
  Company Number: GBS991104928

PATIENT
  Age: 19 Year
  Sex: Female

DRUGS (1)
  1. PROZAC [Suspect]
     Indication: DEPRESSION
     Dates: start: 19980201

REACTIONS (7)
  - ABNORMAL BEHAVIOUR [None]
  - COMPLETED SUICIDE [None]
  - DEPRESSION [None]
  - EUPHORIC MOOD [None]
  - FLAT AFFECT [None]
  - INJURY ASPHYXIATION [None]
  - MUSCLE TIGHTNESS [None]
